FAERS Safety Report 25922213 (Version 3)
Quarter: 2025Q4

REPORT INFORMATION
  Report Type: Spontaneous
  Country: US (occurrence: US)
  Receive Date: 20251015
  Receipt Date: 20251123
  Transmission Date: 20260117
  Serious: No
  Sender: LUPIN
  Company Number: US-LUPIN PHARMACEUTICALS INC.-2025-09257

PATIENT

DRUGS (1)
  1. BROMFENAC [Suspect]
     Active Substance: BROMFENAC
     Indication: Product used for unknown indication
     Dosage: 1 DROP, BID ONE DROP IN EACH EYE

REACTIONS (3)
  - Product dispensing error [Unknown]
  - Product packaging quantity issue [Unknown]
  - No adverse event [Unknown]
